FAERS Safety Report 17418176 (Version 1)
Quarter: 2020Q1

REPORT INFORMATION
  Report Type: Spontaneous
  Country: US (occurrence: US)
  Receive Date: 20200214
  Receipt Date: 20200214
  Transmission Date: 20200409
  Serious: Yes (Death)
  Sender: FDA-Public Use
  Company Number: None

PATIENT
  Age: 77 Year
  Sex: Female
  Weight: 68.4 kg

DRUGS (22)
  1. BENADRYL [Concomitant]
     Active Substance: DIPHENHYDRAMINE HYDROCHLORIDE
  2. FERROUS SULFATE. [Concomitant]
     Active Substance: FERROUS SULFATE
  3. FUROSEMIDE. [Concomitant]
     Active Substance: FUROSEMIDE
  4. MINERAL OIL. [Concomitant]
     Active Substance: MINERAL OIL
  5. TYLENOL EXTRA STRENGTH [Concomitant]
     Active Substance: ACETAMINOPHEN
  6. AMLODIPINE [Concomitant]
     Active Substance: AMLODIPINE BESYLATE
  7. ASPIRIN. [Concomitant]
     Active Substance: ASPIRIN
  8. BISACODYL LAXATIVE [Concomitant]
     Active Substance: BISACODYL
  9. LATANOPROST. [Concomitant]
     Active Substance: LATANOPROST
  10. COMBIGAN [Concomitant]
     Active Substance: BRIMONIDINE TARTRATE\TIMOLOL MALEATE
  11. LANTUS [Concomitant]
     Active Substance: INSULIN GLARGINE
  12. IPRATOPIUM-ALBUTEROL [Concomitant]
  13. ALLOPURINOL. [Concomitant]
     Active Substance: ALLOPURINOL
  14. AMIODARONE [Concomitant]
     Active Substance: AMIODARONE
  15. ELIQUIS [Concomitant]
     Active Substance: APIXABAN
  16. TUMS [Concomitant]
     Active Substance: CALCIUM CARBONATE
  17. HUMALOG [Concomitant]
     Active Substance: INSULIN LISPRO
  18. MILK OF MAGNESIA [Concomitant]
     Active Substance: MAGNESIUM HYDROXIDE
  19. ATENOLOL. [Concomitant]
     Active Substance: ATENOLOL
  20. TECENTRIQ [Suspect]
     Active Substance: ATEZOLIZUMAB
     Indication: METASTASES TO LUNG
     Dosage: ?          OTHER FREQUENCY:EVERY 3 WEEKS;?
     Route: 042
     Dates: start: 20200203, end: 20200208
  21. ELIQUIS [Concomitant]
     Active Substance: APIXABAN
  22. GLUCAGON. [Concomitant]
     Active Substance: GLUCAGON

REACTIONS (1)
  - Death [None]

NARRATIVE: CASE EVENT DATE: 20200208
